FAERS Safety Report 5118098-4 (Version None)
Quarter: 2006Q4

REPORT INFORMATION
  Report Type: 
  Country: None (occurrence: None)
  Receive Date: 20061002
  Receipt Date: 20060920
  Transmission Date: 20070319
  Serious: Yes (Hospitalization, Other)
  Sender: FDA-Public Use
  Company Number: US-JNJFOC-20060802703

PATIENT
  Sex: Female
  Weight: 78.47 kg

DRUGS (5)
  1. REMICADE [Suspect]
     Dosage: 4 VIALS
  2. REMICADE [Suspect]
  3. REMICADE [Suspect]
  4. REMICADE [Suspect]
     Indication: CROHN'S DISEASE
     Dosage: DOSE ^MAYBE 4-5 VIALS EVERY 7-8 WEEKS^
  5. PENTASA [Concomitant]

REACTIONS (10)
  - BLOOD PRESSURE INCREASED [None]
  - BURNING SENSATION [None]
  - CHEST DISCOMFORT [None]
  - CHEST PAIN [None]
  - DYSPHAGIA [None]
  - HEADACHE [None]
  - HYPOAESTHESIA [None]
  - INFUSION RELATED REACTION [None]
  - PARAESTHESIA [None]
  - SENSORY LOSS [None]
